FAERS Safety Report 16002293 (Version 1)
Quarter: 2019Q1

REPORT INFORMATION
  Report Type: Report from Study
  Country: US (occurrence: US)
  Receive Date: 20190225
  Receipt Date: 20190225
  Transmission Date: 20190418
  Serious: Yes (Hospitalization)
  Sender: FDA-Public Use
  Company Number: US-ACTELION-A-NJ2019-186577

PATIENT
  Age: 70 Year
  Sex: Female

DRUGS (3)
  1. PRADAXA [Concomitant]
     Active Substance: DABIGATRAN ETEXILATE MESYLATE
  2. OPSUMIT [Suspect]
     Active Substance: MACITENTAN
     Indication: PULMONARY ARTERIAL HYPERTENSION
     Dosage: 10 MG, UNK
     Route: 048
     Dates: start: 20160304
  3. ASPIRIN. [Concomitant]
     Active Substance: ASPIRIN

REACTIONS (12)
  - Iron deficiency anaemia [Unknown]
  - Packed red blood cell transfusion [Unknown]
  - Dyspnoea [Unknown]
  - Gastrointestinal haemorrhage [Unknown]
  - Pyrexia [Unknown]
  - Pain in extremity [Unknown]
  - Cough [Unknown]
  - Chest pain [Unknown]
  - Mucosal haemorrhage [Unknown]
  - Gastric ulcer [Unknown]
  - Gastritis [Unknown]
  - Ulcer [Unknown]

NARRATIVE: CASE EVENT DATE: 20190202
